FAERS Safety Report 6887763-0 (Version None)
Quarter: 2010Q3

REPORT INFORMATION
  Report Type: 
  Country: None (occurrence: None)
  Receive Date: 20100730
  Receipt Date: 20100721
  Transmission Date: 20110219
  Serious: Yes (Hospitalization)
  Sender: FDA-Public Use
  Company Number: GB-ROCHE-716886

PATIENT
  Sex: Male
  Weight: 84 kg

DRUGS (2)
  1. PEGASYS [Suspect]
     Route: 058
     Dates: start: 20100317, end: 20100715
  2. RIBAVIRIN [Suspect]
     Route: 048
     Dates: start: 20100317, end: 20100715

REACTIONS (4)
  - ASTHENIA [None]
  - FATIGUE [None]
  - HYPOTENSION [None]
  - LOSS OF CONSCIOUSNESS [None]
